FAERS Safety Report 5985931-3 (Version None)
Quarter: 2008Q4

REPORT INFORMATION
  Report Type: 
  Country: None (occurrence: None)
  Receive Date: 20081205
  Receipt Date: 20081205
  Transmission Date: 20090506
  Serious: Yes (Other)
  Sender: FDA-Public Use
  Company Number: None

PATIENT
  Sex: Female
  Weight: 75 kg

DRUGS (4)
  1. LEVAQUIN [Suspect]
     Indication: PNEUMONIA ASPIRATION
     Dosage: 500 MG Q24H IV, I DOSE
     Route: 042
     Dates: start: 20081101, end: 20081201
  2. FAMOTIDINE [Concomitant]
  3. ENOXAPARIN SODIUM [Concomitant]
  4. ALBUTEROL NEBULAZIERS [Concomitant]

REACTIONS (2)
  - INFUSION RELATED REACTION [None]
  - RASH [None]
